FAERS Safety Report 8220155-0 (Version None)
Quarter: 2012Q1

REPORT INFORMATION
  Report Type: 
  Country: None (occurrence: None)
  Receive Date: 20120320
  Receipt Date: 20120313
  Transmission Date: 20120608
  Serious: No
  Sender: FDA-Public Use
  Company Number: US-BAYER-2012-026053

PATIENT
  Age: 46 Year
  Sex: Male

DRUGS (3)
  1. ONDANSETRON HCL [Concomitant]
     Dosage: UNK
     Dates: start: 20120117
  2. NEXAVAR [Suspect]
     Dosage: 200 MG, BID
     Dates: start: 20120119, end: 20120215
  3. OXYCODONE HCL [Concomitant]

REACTIONS (1)
  - WEIGHT DECREASED [None]
